FAERS Safety Report 4746950-8 (Version None)
Quarter: 2005Q3

REPORT INFORMATION
  Report Type: 
  Country: None (occurrence: None)
  Receive Date: 20050817
  Receipt Date: 20050518
  Transmission Date: 20060218
  Serious: Yes (Hospitalization, Other)
  Sender: FDA-Public Use
  Company Number: JP-SANOFI-SYNTHELABO-F01200500766

PATIENT
  Sex: Male
  Weight: 44 kg

DRUGS (9)
  1. OXALIPLATIN [Suspect]
     Indication: COLON CANCER
     Route: 042
     Dates: start: 20050412, end: 20050412
  2. FLUOROURACIL [Suspect]
     Dosage: 500 MG (347.2 MG/M2 IV BOLUS) AND 3000 MG (2083.3 MG/M2 IV 46 HOURS CONTINUOUS INFUSION), Q2W
     Route: 042
     Dates: start: 20050412, end: 20050413
  3. CALCIUM LEVOFOLINATE [Suspect]
     Route: 042
     Dates: start: 20050412, end: 20050412
  4. IRINOTECAN HYDROCHLORIDE [Concomitant]
  5. DOXIFLURIDINE [Concomitant]
  6. TEGAFUR-GIMERACIL-OTERACIL POTASSIUM [Concomitant]
  7. FLUOROURACIL [Concomitant]
     Dosage: UNK
     Route: 065
     Dates: end: 20050130
  8. FUROSEMIDE [Concomitant]
     Dosage: 2 DF
     Route: 042
     Dates: start: 20050413, end: 20050508
  9. GRANISETRON  HCL [Concomitant]
     Dosage: 2 DF
     Route: 042
     Dates: start: 20050412, end: 20050414

REACTIONS (10)
  - CACHEXIA [None]
  - COLON CANCER [None]
  - DISSEMINATED INTRAVASCULAR COAGULATION [None]
  - HAEMOGLOBIN DECREASED [None]
  - LEUKOPENIA [None]
  - MALIGNANT NEOPLASM PROGRESSION [None]
  - METASTASES TO LIVER [None]
  - METASTASES TO LYMPH NODES [None]
  - NEUTROPENIA [None]
  - THROMBOCYTOPENIA [None]
